FAERS Safety Report 20450589 (Version 2)
Quarter: 2022Q2

REPORT INFORMATION
  Report Type: Report from Study
  Country: US (occurrence: US)
  Receive Date: 20220209
  Receipt Date: 20220516
  Transmission Date: 20220720
  Serious: Yes (Other)
  Sender: FDA-Public Use
  Company Number: US-TAKEDA-2022TUS007554

PATIENT
  Age: 47 Year
  Sex: Female

DRUGS (1)
  1. MOBOCERTINIB [Suspect]
     Active Substance: MOBOCERTINIB
     Indication: Lung neoplasm malignant
     Dosage: 160 MILLIGRAM, QD
     Route: 048
     Dates: start: 20211207

REACTIONS (12)
  - Metastases to central nervous system [Unknown]
  - Seizure [Unknown]
  - Pneumonia [Unknown]
  - Pericardial effusion [Unknown]
  - Eye irritation [Unknown]
  - Ophthalmic migraine [Unknown]
  - Nail infection [Unknown]
  - Heart valve incompetence [Unknown]
  - Parosmia [Unknown]
  - Taste disorder [Unknown]
  - Anal fissure [Unknown]
  - Paronychia [Unknown]

NARRATIVE: CASE EVENT DATE: 20220101
